FAERS Safety Report 8617847 (Version 3)
Quarter: 2012Q4

REPORT INFORMATION
  Report Type: 
  Country: US (occurrence: US)
  Receive Date: 20120615
  Receipt Date: 20120928
  Transmission Date: 20130627
  Serious: Yes (Life-Threatening, Hospitalization, Disabling, Other)
  Sender: FDA-Public Use
  Company Number: US-009507513-1206USA00831

PATIENT

DRUGS (8)
  1. FOSAMAX [Suspect]
     Indication: OSTEOPENIA
     Dosage: 70 mg, qw
     Route: 048
     Dates: start: 20040615, end: 200802
  2. FOSAMAX [Suspect]
     Indication: OSTEOPENIA
     Dosage: 70 mg, UNK
     Route: 048
     Dates: start: 20080211, end: 20100531
  3. FOSAMAX [Suspect]
     Indication: OSTEOPOROSIS
  4. VITAMINS (UNSPECIFIED) [Concomitant]
     Dosage: UNK
     Route: 048
     Dates: start: 2002
  5. CALCIUM [Concomitant]
     Dosage: 1200 mg, UNK
     Dates: start: 2002
  6. VITAMIN E [Concomitant]
     Dosage: 400 mg, UNK
     Dates: start: 2004
  7. NEXIUM [Concomitant]
     Dosage: UNK
     Dates: start: 2000, end: 2011
  8. PLAQUENIL [Concomitant]
     Indication: SYSTEMIC LUPUS ERYTHEMATOSUS
     Dosage: UNK
     Dates: start: 2000

REACTIONS (23)
  - Femur fracture [Recovered/Resolved with Sequelae]
  - Foot fracture [Unknown]
  - Diabetes mellitus [Unknown]
  - Vitamin D decreased [Not Recovered/Not Resolved]
  - Tooth disorder [Unknown]
  - Acrochordon [Unknown]
  - Hypertension [Unknown]
  - Blood cholesterol increased [Unknown]
  - Pain in extremity [Not Recovered/Not Resolved]
  - Arthritis [Unknown]
  - Sleep disorder [Not Recovered/Not Resolved]
  - Spinal column stenosis [Unknown]
  - Arthralgia [Not Recovered/Not Resolved]
  - Cataract [Unknown]
  - Cataract [Unknown]
  - Device malfunction [Recovered/Resolved with Sequelae]
  - Diverticulum [Unknown]
  - Hyperlipidaemia [Unknown]
  - Palpitations [Unknown]
  - Anxiety [Unknown]
  - Hiatus hernia [Unknown]
  - Intramedullary rod insertion [Unknown]
  - Foot fracture [Unknown]
